FAERS Safety Report 5124715-5 (Version None)
Quarter: 2006Q4

REPORT INFORMATION
  Report Type: 
  Country: None (occurrence: None)
  Receive Date: 20061006
  Receipt Date: 20060921
  Transmission Date: 20070319
  Serious: No
  Sender: FDA-Public Use
  Company Number: 36462

PATIENT
  Sex: Female

DRUGS (1)
  1. TRAVOPROST 0.004% SOLUTION [Suspect]
     Dosage: OPHT
     Route: 047
     Dates: start: 20060504

REACTIONS (2)
  - ABORTION SPONTANEOUS [None]
  - DRUG EXPOSURE DURING PREGNANCY [None]
